FAERS Safety Report 6532141-7 (Version None)
Quarter: 2010Q1

REPORT INFORMATION
  Report Type: 
  Country: None (occurrence: None)
  Receive Date: 20100107
  Receipt Date: 20100107
  Transmission Date: 20100710
  Serious: Yes (Other)
  Sender: FDA-Public Use
  Company Number: None

PATIENT
  Age: 64 Year
  Sex: Male
  Weight: 117.9352 kg

DRUGS (1)
  1. ZICAM GEL SWABS ZINCUM GLUCONICUM 2X LOT 30575A [Suspect]
     Indication: NASOPHARYNGITIS
     Dosage: ONE SWAB EVERY 4 HRS NASAL
     Route: 045
     Dates: start: 20090525, end: 20090529

REACTIONS (1)
  - ANOSMIA [None]
